FAERS Safety Report 4532685-3 (Version None)
Quarter: 2004Q4

REPORT INFORMATION
  Report Type: 
  Country: None (occurrence: None)
  Receive Date: 20041221
  Receipt Date: 20041213
  Transmission Date: 20050328
  Serious: Yes (Hospitalization)
  Sender: FDA-Public Use
  Company Number: PHBS2004ES16797

PATIENT
  Age: 63 Year
  Sex: Male

DRUGS (1)
  1. VOLTAREN [Suspect]
     Indication: INTERVERTEBRAL DISC DISORDER
     Dosage: UNK, UNK
     Route: 048
     Dates: end: 20040804

REACTIONS (1)
  - HYPONATRAEMIA [None]
